FAERS Safety Report 18902596 (Version 2)
Quarter: 2021Q1

REPORT INFORMATION
  Report Type: Report from Study
  Country: IT (occurrence: IT)
  Receive Date: 20210216
  Receipt Date: 20210219
  Transmission Date: 20210420
  Serious: Yes (Hospitalization, Other)
  Sender: FDA-Public Use
  Company Number: IT-GILEAD-2021-0517403

PATIENT
  Sex: Male
  Weight: 68 kg

DRUGS (22)
  1. CYCLOPHOSPHAMIDE. [Concomitant]
     Active Substance: CYCLOPHOSPHAMIDE
  2. BACTRIM [Concomitant]
     Active Substance: SULFAMETHOXAZOLE\TRIMETHOPRIM
  3. BICARBONATE [Concomitant]
     Active Substance: SODIUM BICARBONATE
  4. KTE?X19 [Suspect]
     Active Substance: AXICABTAGENE CILOLEUCEL
     Indication: MANTLE CELL LYMPHOMA
     Dosage: UNK
     Route: 065
     Dates: start: 20210118, end: 20210118
  5. ALLOPURINOLO [Concomitant]
     Active Substance: ALLOPURINOL
  6. TIAMINA [THIAMINE] [Concomitant]
  7. PANTOPRAZOLO [Concomitant]
     Active Substance: PANTOPRAZOLE SODIUM
  8. KEPPRA [Concomitant]
     Active Substance: LEVETIRACETAM
     Dosage: UNK
     Dates: start: 20210126
  9. MAGNESIUM SULFATE. [Concomitant]
     Active Substance: MAGNESIUM SULFATE
  10. DAPTOMICINA [Concomitant]
     Active Substance: DAPTOMYCIN
  11. FLUCONAZOLO [Concomitant]
  12. MAALOX [ALGELDRATE;MAGNESIUM HYDROXIDE] [Concomitant]
     Active Substance: ALGELDRATE\MAGNESIUM HYDROXIDE
  13. FOLINA [CALCIUM FOLINATE] [Concomitant]
     Active Substance: LEUCOVORIN CALCIUM
  14. TRIMETON [Concomitant]
     Active Substance: CHLORPHENIRAMINE MALEATE
  15. TAZOCIN [Concomitant]
     Active Substance: PIPERACILLIN SODIUM\TAZOBACTAM SODIUM
  16. MEROPENEM. [Concomitant]
     Active Substance: MEROPENEM
  17. ACICLOVIR [Concomitant]
     Active Substance: ACYCLOVIR
  18. FLUDARABINA [FLUDARABINE] [Concomitant]
  19. CELEBREX [Concomitant]
     Active Substance: CELECOXIB
  20. LEDERFOLIN [Concomitant]
     Active Substance: LEUCOVORIN CALCIUM
  21. SF (SODIUM FLUORIDE) [Concomitant]
     Active Substance: SODIUM FLUORIDE
  22. NACL [Concomitant]
     Active Substance: SODIUM CHLORIDE

REACTIONS (2)
  - Immune effector cell-associated neurotoxicity syndrome [Recovered/Resolved with Sequelae]
  - Cytokine release syndrome [Recovered/Resolved]

NARRATIVE: CASE EVENT DATE: 20210119
